FAERS Safety Report 17413703 (Version 1)
Quarter: 2020Q1

REPORT INFORMATION
  Report Type: Report from Study
  Country: IN (occurrence: IN)
  Receive Date: 20200213
  Receipt Date: 20200213
  Transmission Date: 20200409
  Serious: Yes (Other)
  Sender: FDA-Public Use
  Company Number: IN-MYLANLABS-2020M1015995

PATIENT
  Sex: Male

DRUGS (4)
  1. MELPHALAN. [Suspect]
     Active Substance: MELPHALAN
     Indication: RETINOBLASTOMA
     Dosage: ADMINISTERED FOR 1 CYCLE
     Route: 013
  2. VINCRISTINE [Suspect]
     Active Substance: VINCRISTINE
     Indication: RETINOBLASTOMA
     Dosage: ADJUNCT TREATMENT; VEC REGIMEN; ADMINISTERED FOR 6 CYCLES
     Route: 065
  3. ETOPOSIDE. [Suspect]
     Active Substance: ETOPOSIDE
     Indication: RETINOBLASTOMA
     Dosage: ADJUNCT TREATMENT; VEC REGIMEN; ADMINISTERED FOR 6 CYCLES
     Route: 065
  4. CARBOPLATIN. [Suspect]
     Active Substance: CARBOPLATIN
     Indication: RETINOBLASTOMA
     Dosage: ADJUNCT TREATMENT; VEC REGIMEN; ADMINISTERED FOR 6 CYCLES
     Route: 065

REACTIONS (1)
  - Vitreous haemorrhage [Unknown]
